FAERS Safety Report 9071695 (Version 3)
Quarter: 2018Q4

REPORT INFORMATION
  Report Type: Report from Study
  Country: US (occurrence: US)
  Receive Date: 20130129
  Receipt Date: 20181008
  Transmission Date: 20190205
  Serious: Yes (Other)
  Sender: FDA-Public Use
  Company Number: US-ROCHE-1181987

PATIENT

DRUGS (4)
  1. RITUXIMAB. [Suspect]
     Active Substance: RITUXIMAB
     Indication: LYMPHOMA
     Dosage: UPTO 2 CYCLES
     Route: 042
  2. CARBOPLATIN. [Suspect]
     Active Substance: CARBOPLATIN
     Indication: LYMPHOMA
     Dosage: AREA UNDER THE CURVE (AUC) = 5 ON DAY 1, CAPPED AT 800 MG OVER 1 H ON DAY 1,
     Route: 042
  3. ETOPOSIDE. [Suspect]
     Active Substance: ETOPOSIDE
     Indication: LYMPHOMA
     Dosage: ON DAYS 1 TO 3 OF 21 DAY CYCLE
     Route: 042
  4. BENDAMUSTINE [Suspect]
     Active Substance: BENDAMUSTINE
     Indication: LYMPHOMA
     Dosage: 60 TO 120 MG/M2 DAILY ON DAYS 1 AND 2 OF 21 DAY CYCLE
     Route: 042

REACTIONS (18)
  - Rash [Unknown]
  - Neutropenia [Unknown]
  - Headache [Unknown]
  - Anaemia [Unknown]
  - Thrombocytopenia [Unknown]
  - Syncope [Unknown]
  - Febrile neutropenia [Unknown]
  - Phlebitis [Unknown]
  - Infection [Unknown]
  - Hypokalaemia [Unknown]
  - Pain [Unknown]
  - Superior vena cava syndrome [Unknown]
  - Pyrexia [Unknown]
  - Dehydration [Unknown]
  - Hypophosphataemia [Unknown]
  - Hypertension [Unknown]
  - Nausea [Unknown]
  - Meningitis aseptic [Unknown]
